FAERS Safety Report 25975876 (Version 1)
Quarter: 2025Q4

REPORT INFORMATION
  Report Type: Spontaneous
  Country: CN (occurrence: CN)
  Receive Date: 20251029
  Receipt Date: 20251029
  Transmission Date: 20260118
  Serious: Yes (Hospitalization)
  Sender: BEIGENE
  Company Number: CN-BEIGENE-BGN-2025-018378

PATIENT
  Age: 59 Year
  Weight: 80 kg

DRUGS (10)
  1. TISLELIZUMAB [Suspect]
     Active Substance: TISLELIZUMAB
     Indication: Metastases to liver
     Dosage: 200 MILLIGRAM
  2. TISLELIZUMAB [Suspect]
     Active Substance: TISLELIZUMAB
     Dosage: 200 MILLIGRAM
     Route: 041
  3. TISLELIZUMAB [Suspect]
     Active Substance: TISLELIZUMAB
     Dosage: 200 MILLIGRAM
     Route: 041
  4. TISLELIZUMAB [Suspect]
     Active Substance: TISLELIZUMAB
     Dosage: 200 MILLIGRAM
  5. CAPECITABINE [Concomitant]
     Active Substance: CAPECITABINE
     Indication: Metastases to liver
     Dosage: 2 GRAM, BID
  6. CAPECITABINE [Concomitant]
     Active Substance: CAPECITABINE
     Dosage: 2 GRAM, BID
     Route: 048
  7. CAPECITABINE [Concomitant]
     Active Substance: CAPECITABINE
     Dosage: 2 GRAM, BID
     Route: 048
  8. CAPECITABINE [Concomitant]
     Active Substance: CAPECITABINE
     Dosage: 2 GRAM, BID
  9. OXALIPLATIN [Concomitant]
     Active Substance: OXALIPLATIN
     Indication: Metastases to liver
     Dosage: 240 MILLIGRAM, QD
     Route: 041
  10. OXALIPLATIN [Concomitant]
     Active Substance: OXALIPLATIN
     Dosage: 240 MILLIGRAM, QD

REACTIONS (2)
  - Dermatitis [Recovered/Resolved]
  - Drug eruption [Recovered/Resolved]
